FAERS Safety Report 4572052-X (Version None)
Quarter: 2005Q1

REPORT INFORMATION
  Report Type: 
  Country: None (occurrence: None)
  Receive Date: 20050202
  Receipt Date: 20041129
  Transmission Date: 20050727
  Serious: Yes (Hospitalization)
  Sender: FDA-Public Use
  Company Number: 2004BI000560

PATIENT
  Age: 37 Year
  Sex: Male
  Weight: 140.6151 kg

DRUGS (8)
  1. AMEVIVE [Suspect]
     Indication: PSORIASIS
     Dosage: UG; QW; IM
     Route: 030
     Dates: start: 20040727, end: 20040817
  2. AMEVIVE [Suspect]
     Indication: PSORIASIS
     Dosage: UG; QW; IM
     Route: 030
     Dates: start: 20040831
  3. ALTACE [Concomitant]
  4. PROCARDIA [Concomitant]
  5. TOPROL-XL [Concomitant]
  6. LASIX [Concomitant]
  7. TRICOR [Concomitant]
  8. POTASSIUM CHLORIDE [Concomitant]

REACTIONS (7)
  - ALANINE AMINOTRANSFERASE INCREASED [None]
  - ASTHENIA [None]
  - GLUCOSE URINE PRESENT [None]
  - MUSCLE SPASMS [None]
  - MYOSITIS [None]
  - VIRAL INFECTION [None]
  - WHITE BLOOD CELL COUNT DECREASED [None]
